FAERS Safety Report 21979600 (Version 3)
Quarter: 2023Q2

REPORT INFORMATION
  Report Type: Report from Study
  Country: CR (occurrence: CR)
  Receive Date: 20230210
  Receipt Date: 20230407
  Transmission Date: 20230721
  Serious: Yes (Other)
  Sender: FDA-Public Use
  Company Number: CR-002147023-NVSC2023CR028749

PATIENT
  Sex: Female
  Weight: 76 kg

DRUGS (1)
  1. HYDROCHLOROTHIAZIDE\VALSARTAN [Suspect]
     Active Substance: HYDROCHLOROTHIAZIDE\VALSARTAN
     Indication: Hypertension
     Dosage: 320/25 MG, QD, 10 YEARS AGO, EXACT, DATE WAS NOT REMEMBERED
     Route: 048
     Dates: start: 2013, end: 202301

REACTIONS (11)
  - Haematological malignancy [Recovering/Resolving]
  - Anaemia [Recovered/Resolved]
  - Fatigue [Unknown]
  - Asthenia [Unknown]
  - Diabetes mellitus [Unknown]
  - Memory impairment [Not Recovered/Not Resolved]
  - Chills [Not Recovered/Not Resolved]
  - Pain [Unknown]
  - Depression [Recovering/Resolving]
  - Nasopharyngitis [Recovering/Resolving]
  - Abdominal pain upper [Recovered/Resolved]

NARRATIVE: CASE EVENT DATE: 20210101
